FAERS Safety Report 9399794 (Version 1)
Quarter: 2013Q3

REPORT INFORMATION
  Report Type: Spontaneous
  Country: NZ (occurrence: NZ)
  Receive Date: 20130715
  Receipt Date: 20130715
  Transmission Date: 20140515
  Serious: Yes (Other)
  Sender: FDA-Public Use
  Company Number: PHHY2013NZ073617

PATIENT
  Age: 27 Year
  Sex: Female

DRUGS (2)
  1. DICLOFENAC [Suspect]
     Dosage: UNK UKN, UNK
     Route: 048
  2. PARACETAMOL [Concomitant]
     Dosage: UNK UKN, UNK
     Route: 048

REACTIONS (4)
  - Renal impairment [Unknown]
  - Abdominal pain [Unknown]
  - Decreased appetite [Unknown]
  - Nausea [Unknown]
